FAERS Safety Report 7407922-8 (Version None)
Quarter: 2011Q1

REPORT INFORMATION
  Report Type: 
  Country: None (occurrence: None)
  Receive Date: 20110301
  Receipt Date: 20100902
  Transmission Date: 20110831
  Serious: Yes (Disabling, Other)
  Sender: FDA-Public Use
  Company Number: ALA_00894_2010

PATIENT
  Sex: Female
  Weight: 117.028 kg

DRUGS (8)
  1. REGLAN [Suspect]
     Indication: GASTROOESOPHAGEAL REFLUX DISEASE
     Dosage: (DF ORAL)
     Route: 048
     Dates: start: 20090102, end: 20090101
  2. WELLBUTRIN [Concomitant]
  3. BENADRYL [Concomitant]
  4. STEROID [Concomitant]
  5. PHENERGAN HCL [Concomitant]
  6. ANXIOLYTICS [Concomitant]
  7. TYLENOL (CAPLET) [Concomitant]
  8. SLEEP MEDICATION [Concomitant]

REACTIONS (3)
  - EXTRAPYRAMIDAL DISORDER [None]
  - DYSTONIA [None]
  - TARDIVE DYSKINESIA [None]
